FAERS Safety Report 16795203 (Version 1)
Quarter: 2019Q3

REPORT INFORMATION
  Report Type: Spontaneous
  Country: FR (occurrence: FR)
  Receive Date: 20190911
  Receipt Date: 20190911
  Transmission Date: 20191005
  Serious: Yes (Other)
  Sender: FDA-Public Use
  Company Number: FR-PFIZER INC-2019388379

PATIENT
  Age: 81 Year
  Sex: Male
  Weight: 62 kg

DRUGS (10)
  1. BISOPROL [Concomitant]
     Active Substance: BISOPROLOL FUMARATE
     Dosage: UNK
  2. METFORMINE [METFORMIN] [Concomitant]
     Active Substance: METFORMIN HYDROCHLORIDE
     Dosage: UNK
  3. PRAVASTATIN. [Concomitant]
     Active Substance: PRAVASTATIN
     Dosage: UNK
  4. PREVISCAN [FLUINDIONE] [Concomitant]
     Active Substance: FLUINDIONE
     Dosage: UNK
  5. ENTRESTO [Concomitant]
     Active Substance: SACUBITRIL\VALSARTAN
     Dosage: UNK
  6. LANSOPRAZOLE. [Concomitant]
     Active Substance: LANSOPRAZOLE
     Dosage: UNK
  7. CLINDAMYCIN HCL [Suspect]
     Active Substance: CLINDAMYCIN HYDROCHLORIDE
     Indication: OSTEITIS
     Dosage: 900 MG, 1X/DAY
     Route: 048
     Dates: start: 20190801, end: 20190808
  8. ZYVOXID [Concomitant]
     Active Substance: LINEZOLID
     Dosage: UNK
  9. CEFOXITIN [Suspect]
     Active Substance: CEFOXITIN SODIUM
     Indication: OSTEITIS
     Dosage: 6 G, 1X/DAY
     Route: 042
     Dates: start: 20190801, end: 20190808
  10. BACTRIM [Suspect]
     Active Substance: SULFAMETHOXAZOLE\TRIMETHOPRIM
     Indication: OSTEITIS
     Dosage: 3 DF, 1X/DAY
     Route: 048
     Dates: start: 20190801, end: 20190808

REACTIONS (4)
  - Anaemia [Recovering/Resolving]
  - Bicytopenia [Recovering/Resolving]
  - Thrombocytopenia [Recovering/Resolving]
  - Hepatocellular injury [Recovering/Resolving]

NARRATIVE: CASE EVENT DATE: 20190805
